FAERS Safety Report 16981103 (Version 2)
Quarter: 2019Q4

REPORT INFORMATION
  Report Type: Report from Study
  Country: US (occurrence: US)
  Receive Date: 20191031
  Receipt Date: 20191111
  Transmission Date: 20200122
  Serious: Yes (Hospitalization, Other)
  Sender: FDA-Public Use
  Company Number: US-BRISTOL-MYERS SQUIBB COMPANY-BMS-2019-102440

PATIENT
  Age: 46 Year
  Sex: Female
  Weight: 57.6 kg

DRUGS (3)
  1. NIVOLUMAB [Suspect]
     Active Substance: NIVOLUMAB
     Indication: LUNG NEOPLASM MALIGNANT
     Dosage: 240 MILLIGRAM, Q2WK
     Route: 042
     Dates: start: 20190909, end: 20191008
  2. CABIRALIZUMAB [Suspect]
     Active Substance: CABIRALIZUMAB
     Indication: LUNG NEOPLASM MALIGNANT
     Dosage: 4 MILLIGRAM/KILOGRAM, Q2WK
     Route: 042
     Dates: start: 20190909, end: 20191008
  3. APX005M [Suspect]
     Active Substance: INVESTIGATIONAL PRODUCT
     Indication: LUNG NEOPLASM MALIGNANT
     Dosage: 0.3 MILLIGRAM, Q2WK
     Route: 042
     Dates: start: 20190909, end: 20191008

REACTIONS (1)
  - Pneumonia [Unknown]

NARRATIVE: CASE EVENT DATE: 20191022
